FAERS Safety Report 5412455-4 (Version None)
Quarter: 2007Q3

REPORT INFORMATION
  Report Type: 
  Country: None (occurrence: None)
  Receive Date: 20070813
  Receipt Date: 20070807
  Transmission Date: 20080115
  Serious: Yes (Other)
  Sender: FDA-Public Use
  Company Number: US-ASTRAZENECA-2007UW19127

PATIENT
  Sex: Female

DRUGS (12)
  1. ARIMIDEX [Suspect]
     Route: 048
     Dates: start: 20070316
  2. ARIMIDEX [Suspect]
     Route: 048
     Dates: start: 20070414
  3. ARIMIDEX [Suspect]
     Route: 048
     Dates: start: 20070518
  4. ARIMIDEX [Suspect]
     Route: 048
     Dates: start: 20070622
  5. HERCEPTIN [Concomitant]
     Dates: start: 20070101
  6. WARFARIN SODIUM [Concomitant]
  7. TOPROL-XL [Concomitant]
     Route: 048
  8. DILTIAZEM [Concomitant]
  9. FUROSEMIDE [Concomitant]
  10. KLAR-CON [Concomitant]
  11. CILOSTAZOL [Concomitant]
  12. LISINOPRIL [Concomitant]

REACTIONS (2)
  - ARTHRITIS [None]
  - ATRIAL FIBRILLATION [None]
